FAERS Safety Report 10654684 (Version 1)
Quarter: 2014Q4

REPORT INFORMATION
  Report Type: Spontaneous
  Country: US (occurrence: None)
  Receive Date: 20141215
  Receipt Date: 20141215
  Transmission Date: 20150529
  Serious: Yes (Hospitalization)
  Sender: FDA-Public Use
  Company Number: None

PATIENT
  Age: 64 Year
  Sex: Male

DRUGS (1)
  1. TACROLIMUS. [Suspect]
     Active Substance: TACROLIMUS
     Indication: ORGAN TRANSPLANT
     Route: 048
     Dates: start: 20140227

REACTIONS (1)
  - Internal haemorrhage [None]

NARRATIVE: CASE EVENT DATE: 20141125
